FAERS Safety Report 6408866-0 (Version None)
Quarter: 2009Q4

REPORT INFORMATION
  Report Type: 
  Country: None (occurrence: None)
  Receive Date: 20091019
  Receipt Date: 20091002
  Transmission Date: 20100525
  Serious: Yes (Hospitalization)
  Sender: FDA-Public Use
  Company Number: 001922

PATIENT
  Sex: Male

DRUGS (8)
  1. ROTIGOTINE (ROTIGOTINE) [Suspect]
     Indication: PARKINSON'S DISEASE
     Dosage: (4.5MG-36.0MG/DAY TRANSDERMAL) ; (31.5 MG TRANSDERMAL) ; (27 MG TRANSDERMAL)
     Route: 062
     Dates: start: 20081201, end: 20090222
  2. ROTIGOTINE (ROTIGOTINE) [Suspect]
     Indication: PARKINSON'S DISEASE
     Dosage: (4.5MG-36.0MG/DAY TRANSDERMAL) ; (31.5 MG TRANSDERMAL) ; (27 MG TRANSDERMAL)
     Route: 062
     Dates: start: 20090223, end: 20090301
  3. ROTIGOTINE (ROTIGOTINE) [Suspect]
     Indication: PARKINSON'S DISEASE
     Dosage: (4.5MG-36.0MG/DAY TRANSDERMAL) ; (31.5 MG TRANSDERMAL) ; (27 MG TRANSDERMAL)
     Route: 062
     Dates: start: 20090302
  4. TENORMIN [Suspect]
     Indication: HYPERTENSION
     Dosage: (25 MG ORAL)
     Route: 048
     Dates: start: 20090914, end: 20090920
  5. ERYTHROMYCIN ETHYLSUCCINATE [Concomitant]
  6. HERBALS NOS W/VITAMINS NOS [Concomitant]
  7. TEPRENONE [Concomitant]
  8. FLURBIPROFEN [Concomitant]

REACTIONS (10)
  - BLOOD CREATINE PHOSPHOKINASE INCREASED [None]
  - CARDIOVASCULAR DISORDER [None]
  - DEHYDRATION [None]
  - DRUG EFFECT DECREASED [None]
  - HYPOPHAGIA [None]
  - HYPOTENSION [None]
  - PALLOR [None]
  - SNORING [None]
  - SOMNOLENCE [None]
  - UNRESPONSIVE TO STIMULI [None]
